FAERS Safety Report 9631595 (Version 2)
Quarter: 2014Q1

REPORT INFORMATION
  Report Type: Spontaneous
  Country: IN (occurrence: None)
  Receive Date: 20131015
  Receipt Date: 20140116
  Transmission Date: 20141002
  Serious: Yes (Other)
  Sender: FDA-Public Use
  Company Number: CO-OR-IN-2013-141

PATIENT
  Age: 45 Year
  Sex: Male

DRUGS (1)
  1. PREDNISOLONE [Suspect]
     Indication: HASHIMOTO^S ENCEPHALOPATHY
     Route: 048

REACTIONS (7)
  - Haematemesis [None]
  - Hypertension [None]
  - Paraesthesia [None]
  - Dysarthria [None]
  - Disturbance in attention [None]
  - Anti-thyroid antibody positive [None]
  - Nuclear magnetic resonance imaging brain abnormal [None]
